FAERS Safety Report 6012717-6 (Version None)
Quarter: 2008Q4

REPORT INFORMATION
  Report Type: 
  Country: None (occurrence: None)
  Receive Date: 20081218
  Receipt Date: 20081209
  Transmission Date: 20090506
  Serious: Yes (Hospitalization, Other)
  Sender: FDA-Public Use
  Company Number: US-AMGEN-STX227119

PATIENT
  Sex: Male

DRUGS (3)
  1. ENBREL [Suspect]
     Indication: RHEUMATOID ARTHRITIS
     Route: 058
     Dates: start: 19990801, end: 20060227
  2. SULFASALAZINE [Concomitant]
     Route: 048
     Dates: start: 20060201, end: 20060223
  3. PLAQUENIL [Concomitant]
     Route: 048
     Dates: start: 19990909, end: 20060223

REACTIONS (9)
  - ABDOMINAL MASS [None]
  - HEADACHE [None]
  - IIIRD NERVE PARALYSIS [None]
  - LYMPHOMA [None]
  - METASTASES TO MENINGES [None]
  - NAUSEA [None]
  - OPHTHALMOPLEGIA [None]
  - RHEUMATOID ARTHRITIS [None]
  - STAPHYLOCOCCAL INFECTION [None]
